FAERS Safety Report 10064956 (Version 1)
Quarter: 2014Q1

REPORT INFORMATION
  Report Type: Spontaneous
  Country: US (occurrence: None)
  Receive Date: 20140328
  Receipt Date: 20140328
  Transmission Date: 20141002
  Serious: No
  Sender: FDA-Public Use
  Company Number: 1000054587

PATIENT
  Age: 48 Year
  Sex: Female

DRUGS (5)
  1. LINZESS [Suspect]
     Indication: IRRITABLE BOWEL SYNDROME
     Route: 048
     Dates: start: 201310, end: 201401
  2. DICLOFENAC (DICLOFENAC) (DICLOFENAC) [Concomitant]
  3. MIRALAX (POLYETHYLENE GLYCOL) (POLYETHYLENE GLYCOL) [Concomitant]
  4. ZOFRAN (ONDANSETRON) (ONDANSETRON) [Concomitant]
  5. LANSOPRAZOLE (LANSOPRAZOLE) (LANSOPRAZOLE) [Concomitant]

REACTIONS (1)
  - Abdominal pain [None]
